FAERS Safety Report 7563303-8 (Version None)
Quarter: 2011Q2

REPORT INFORMATION
  Report Type: 
  Country: None (occurrence: None)
  Receive Date: 20110621
  Receipt Date: 20110621
  Transmission Date: 20111010
  Serious: Yes (Life-Threatening)
  Sender: FDA-Public Use
  Company Number: None

PATIENT
  Age: 61 Year
  Sex: Female
  Weight: 48.9885 kg

DRUGS (2)
  1. CYMBALTA [Suspect]
     Indication: PANIC REACTION
     Dosage: 20MG 2X DAY PO
     Route: 048
     Dates: start: 20110128, end: 20110617
  2. CYMBALTA [Suspect]
     Indication: ANXIETY
     Dosage: 20MG 2X DAY PO
     Route: 048
     Dates: start: 20110128, end: 20110617

REACTIONS (15)
  - WEIGHT INCREASED [None]
  - DYSPNOEA [None]
  - BALANCE DISORDER [None]
  - FEAR [None]
  - FATIGUE [None]
  - HYPERHIDROSIS [None]
  - FEELING ABNORMAL [None]
  - VISION BLURRED [None]
  - ABDOMINAL DISTENSION [None]
  - NAUSEA [None]
  - IMPAIRED DRIVING ABILITY [None]
  - SOCIAL AVOIDANT BEHAVIOUR [None]
  - ARTHRALGIA [None]
  - MIDDLE INSOMNIA [None]
  - ASTHENIA [None]
